FAERS Safety Report 17730656 (Version 1)
Quarter: 2020Q2

REPORT INFORMATION
  Report Type: Spontaneous
  Country: DK (occurrence: DK)
  Receive Date: 20200430
  Receipt Date: 20200430
  Transmission Date: 20200714
  Serious: Yes (Other)
  Sender: FDA-Public Use
  Company Number: DK-PFIZER INC-2020173890

PATIENT
  Age: 36 Year
  Sex: Female

DRUGS (1)
  1. ZESSLY [Suspect]
     Active Substance: INFLIXIMAB
     Indication: CROHN^S DISEASE
     Dosage: 400 MG
     Route: 042
     Dates: start: 20190416, end: 201910

REACTIONS (6)
  - Fatigue [Unknown]
  - Immune-mediated hepatitis [Not Recovered/Not Resolved]
  - Hepatitis toxic [Not Recovered/Not Resolved]
  - Dizziness [Unknown]
  - Alanine aminotransferase increased [Unknown]
  - Headache [Unknown]

NARRATIVE: CASE EVENT DATE: 201909
